FAERS Safety Report 20168411 (Version 1)
Quarter: 2021Q4

REPORT INFORMATION
  Report Type: Spontaneous
  Country: US (occurrence: US)
  Receive Date: 20211210
  Receipt Date: 20211210
  Transmission Date: 20220303
  Serious: Yes (Hospitalization, Other)
  Sender: FDA-Public Use
  Company Number: US-VIWITPHARMA-2021VWTLIT00005

PATIENT
  Age: 28 Year
  Sex: Male

DRUGS (5)
  1. TOPIRAMATE [Suspect]
     Active Substance: TOPIRAMATE
     Indication: Irritability
  2. SERTRALINE [Suspect]
     Active Substance: SERTRALINE HYDROCHLORIDE
     Indication: Bipolar disorder
  3. OLANZAPINE [Concomitant]
     Active Substance: OLANZAPINE
     Indication: Bipolar disorder
  4. QUETIAPINE [Concomitant]
     Active Substance: QUETIAPINE
     Indication: Bipolar disorder
  5. PHENYLEPHRINE [Interacting]
     Active Substance: PHENYLEPHRINE HYDROCHLORIDE
     Indication: Priapism

REACTIONS (9)
  - Priapism [Unknown]
  - Painful erection [Not Recovered/Not Resolved]
  - Pain in extremity [Unknown]
  - Testicular pain [Unknown]
  - Urinary retention [Unknown]
  - Penile swelling [Unknown]
  - Penile pain [Recovering/Resolving]
  - Anxiety [Unknown]
  - Off label use [Unknown]
